FAERS Safety Report 12313755 (Version 1)
Quarter: 2016Q2

REPORT INFORMATION
  Report Type: Spontaneous
  Country: US (occurrence: US)
  Receive Date: 20160428
  Receipt Date: 20160428
  Transmission Date: 20160815
  Serious: No
  Sender: FDA-Public Use
  Company Number: US-BAUSCH-BL-2016-002877

PATIENT
  Age: 66 Year
  Sex: Male

DRUGS (6)
  1. FLONASE [Concomitant]
     Active Substance: FLUTICASONE PROPIONATE
     Indication: HYPERSENSITIVITY
     Route: 045
  2. PANCREASE MT [Concomitant]
     Active Substance: PANCRELIPASE
     Indication: PANCREATIC ENZYMES ABNORMAL
     Route: 048
  3. ZYCLARA [Suspect]
     Active Substance: IMIQUIMOD
     Route: 061
     Dates: end: 2015
  4. ASMANEX [Concomitant]
     Active Substance: MOMETASONE FUROATE
     Indication: ASTHMA
     Route: 048
  5. WELLBUTRIN [Concomitant]
     Active Substance: BUPROPION HYDROCHLORIDE
     Indication: CONCUSSION
     Route: 048
  6. ZYCLARA [Suspect]
     Active Substance: IMIQUIMOD
     Indication: SKIN CANCER
     Route: 061
     Dates: start: 2015, end: 2015

REACTIONS (4)
  - Chills [Recovered/Resolved]
  - Influenza like illness [Recovered/Resolved]
  - Pain [Unknown]
  - Nausea [Recovering/Resolving]

NARRATIVE: CASE EVENT DATE: 2015
